FAERS Safety Report 17764266 (Version 2)
Quarter: 2020Q2

REPORT INFORMATION
  Report Type: Report from Study
  Country: US (occurrence: US)
  Receive Date: 20200511
  Receipt Date: 20200525
  Transmission Date: 20200714
  Serious: Yes (Other)
  Sender: FDA-Public Use
  Company Number: US-BEH-2020116843

PATIENT
  Age: 48 Year
  Sex: Female
  Weight: 99.77 kg

DRUGS (3)
  1. LANADELUMAB [Concomitant]
     Active Substance: LANADELUMAB
     Indication: HEREDITARY ANGIOEDEMA
  2. HAEGARDA [Suspect]
     Active Substance: HUMAN C1-ESTERASE INHIBITOR
     Indication: HEREDITARY ANGIOEDEMA
     Dosage: 5000 (ONE OF EACH 2000 AND 3000), EVERY THREE OR FOUR DAYS (BIW)
     Route: 058
     Dates: start: 20180911
  3. HAEGARDA [Suspect]
     Active Substance: HUMAN C1-ESTERASE INHIBITOR
     Indication: PROPHYLAXIS
     Dosage: 5000 (UNITS NOT REPORTED), TWICE WEEKLY
     Route: 058
     Dates: start: 20180822

REACTIONS (6)
  - Unevaluable event [Unknown]
  - Underdose [Unknown]
  - Intentional product misuse [Unknown]
  - Hereditary angioedema [Unknown]
  - Drug ineffective [Unknown]
  - No adverse event [Unknown]

NARRATIVE: CASE EVENT DATE: 20200428
